FAERS Safety Report 19660560 (Version 1)
Quarter: 2021Q3

REPORT INFORMATION
  Report Type: Spontaneous
  Country: IT (occurrence: IT)
  Receive Date: 20210805
  Receipt Date: 20210805
  Transmission Date: 20211014
  Serious: Yes (Hospitalization)
  Sender: FDA-Public Use
  Company Number: IT-ELI_LILLY_AND_COMPANY-IT202107009709

PATIENT
  Age: 56 Year
  Sex: Male

DRUGS (1)
  1. OLUMIANT [Suspect]
     Active Substance: BARICITINIB
     Indication: RHEUMATOID VASCULITIS
     Dosage: 4 MG, DAILY
     Route: 048
     Dates: start: 20180911, end: 20210621

REACTIONS (6)
  - Asthenia [Unknown]
  - Weight decreased [Unknown]
  - Lymphadenopathy mediastinal [Unknown]
  - Heteroplasia [Unknown]
  - Lung adenocarcinoma [Unknown]
  - Pulmonary mass [Unknown]

NARRATIVE: CASE EVENT DATE: 20210614
